FAERS Safety Report 9709260 (Version 1)
Quarter: 2013Q4

REPORT INFORMATION
  Report Type: Report from Study
  Country: US (occurrence: US)
  Receive Date: 20131125
  Receipt Date: 20131125
  Transmission Date: 20140711
  Serious: Yes (Hospitalization, Other)
  Sender: FDA-Public Use
  Company Number: US-ABBVIE-13P-163-1171058-00

PATIENT
  Age: 68 Year
  Sex: 0

DRUGS (12)
  1. HUMIRA [Suspect]
     Indication: CROHN^S DISEASE
     Route: 058
     Dates: end: 2012
  2. HUMIRA [Suspect]
     Dates: start: 201301
  3. HUMIRA [Suspect]
     Route: 058
     Dates: start: 201310
  4. PRORENAL [Concomitant]
     Indication: RENAL DISORDER
     Dosage: 1000 MG DAILY
  5. PRORENAL [Concomitant]
     Indication: GOUT
  6. CAMPRAL [Concomitant]
     Indication: RENAL DISORDER
  7. CAMPRAL [Concomitant]
     Indication: GOUT
  8. UNKNOWN MEDICATION [Concomitant]
     Indication: GOUT
  9. PROBIOTIC [Concomitant]
     Indication: PRODUCT USED FOR UNKNOWN INDICATION
  10. VITAMIN D [Concomitant]
     Indication: PRODUCT USED FOR UNKNOWN INDICATION
  11. VITAMIN B12 [Concomitant]
     Indication: PRODUCT USED FOR UNKNOWN INDICATION
  12. PRILOSEC [Concomitant]
     Indication: HIATUS HERNIA

REACTIONS (7)
  - Asthenia [Not Recovered/Not Resolved]
  - Dizziness [Not Recovered/Not Resolved]
  - Tremor [Not Recovered/Not Resolved]
  - Fistula [Not Recovered/Not Resolved]
  - Psoas abscess [Recovering/Resolving]
  - Back pain [Recovering/Resolving]
  - Drug ineffective [Unknown]
